FAERS Safety Report 11119103 (Version 1)
Quarter: 2015Q2

REPORT INFORMATION
  Report Type: Spontaneous
  Country: GB (occurrence: GB)
  Receive Date: 20150518
  Receipt Date: 20150518
  Transmission Date: 20150821
  Serious: Yes (Other)
  Sender: FDA-Public Use
  Company Number: GB-PFIZER INC-2015163200

PATIENT
  Age: 25 Year
  Sex: Male

DRUGS (1)
  1. CHAMPIX [Suspect]
     Active Substance: VARENICLINE TARTRATE
     Dosage: 1 MG, 2X/DAY
     Route: 048
     Dates: start: 20150320, end: 2015

REACTIONS (3)
  - Tearfulness [Unknown]
  - Anger [Unknown]
  - Agitated depression [Recovered/Resolved]

NARRATIVE: CASE EVENT DATE: 2015
